FAERS Safety Report 7987981-4 (Version None)
Quarter: 2011Q4

REPORT INFORMATION
  Report Type: 
  Country: None (occurrence: None)
  Receive Date: 20111216
  Receipt Date: 20110609
  Transmission Date: 20120403
  Serious: Yes (Other)
  Sender: FDA-Public Use
  Company Number: US-BRISTOL-MYERS SQUIBB COMPANY-15760911

PATIENT
  Age: 53 Year
  Sex: Female

DRUGS (14)
  1. QVAR 40 [Concomitant]
     Dosage: INHALER
  2. CYMBALTA [Concomitant]
     Indication: NEUROPATHY PERIPHERAL
  3. TRAZODONE HCL [Concomitant]
     Indication: SLEEP DISORDER
  4. ACETAMINOPHEN [Concomitant]
     Dosage: EXTRA STRENGTH
  5. NITROSTAT [Concomitant]
  6. OMEPRAZOLE [Concomitant]
  7. TRAMADOL HCL [Concomitant]
     Dosage: SUPPOSED TO BE BID MOST TIME NOT TAKEN EVERYDAY
  8. ABILIFY [Suspect]
     Indication: BIPOLAR DISORDER
  9. CYCLOBENZAPRINE [Concomitant]
     Indication: HEAD INJURY
  10. CYCLOBENZAPRINE [Concomitant]
     Indication: FIBROMYALGIA
  11. GABAPENTIN [Concomitant]
  12. TRAZODONE HCL [Concomitant]
     Indication: FIBROMYALGIA
  13. TOPAMAX [Concomitant]
  14. VENTOLIN [Concomitant]
     Dates: start: 20100101

REACTIONS (3)
  - DYSKINESIA [None]
  - COGNITIVE DISORDER [None]
  - SUICIDAL IDEATION [None]
